FAERS Safety Report 7905904-0 (Version None)
Quarter: 2011Q4

REPORT INFORMATION
  Report Type: 
  Country: None (occurrence: None)
  Receive Date: 20111108
  Receipt Date: 20111024
  Transmission Date: 20120403
  Serious: Yes (Life-Threatening, Hospitalization)
  Sender: FDA-Public Use
  Company Number: 2011S1000346

PATIENT
  Age: 50 Year
  Sex: Male

DRUGS (4)
  1. INOMAX [Suspect]
     Indication: HEART TRANSPLANT
     Dosage: 20 PPM; ;INH   1 PPM;  ;INH   20 PPM;  ;INH   40 PPM;  ;INH
     Route: 055
     Dates: end: 20111024
  2. INOMAX [Suspect]
     Indication: HEART TRANSPLANT
     Dosage: 20 PPM; ;INH   1 PPM;  ;INH   20 PPM;  ;INH   40 PPM;  ;INH
     Route: 055
     Dates: start: 20111024
  3. INOMAX [Suspect]
     Indication: HEART TRANSPLANT
     Dosage: 20 PPM; ;INH   1 PPM;  ;INH   20 PPM;  ;INH   40 PPM;  ;INH
     Route: 055
     Dates: start: 20111022
  4. INOMAX [Suspect]
     Indication: HEART TRANSPLANT
     Dosage: 20 PPM; ;INH   1 PPM;  ;INH   20 PPM;  ;INH   40 PPM;  ;INH
     Route: 055
     Dates: start: 20111024

REACTIONS (4)
  - RIGHT VENTRICULAR FAILURE [None]
  - HYPOTENSION [None]
  - PULMONARY HYPERTENSION [None]
  - CARDIO-RESPIRATORY ARREST [None]
